FAERS Safety Report 9773616 (Version 3)
Quarter: 2014Q1

REPORT INFORMATION
  Report Type: Report from Study
  Country: NL (occurrence: NL)
  Receive Date: 20131219
  Receipt Date: 20140304
  Transmission Date: 20141002
  Serious: Yes (Hospitalization, Other)
  Sender: FDA-Public Use
  Company Number: NL-BAXTER-2013BAX050208

PATIENT
  Age: 41 Year
  Sex: Female

DRUGS (4)
  1. GAMMAGARD S/D 10, POEDER VOOR INFUSIEVLOEISTOF [Suspect]
     Indication: MYASTHENIA GRAVIS
     Route: 042
  2. GAMMAGARD S/D 10, POEDER VOOR INFUSIEVLOEISTOF [Suspect]
     Indication: OFF LABEL USE
     Route: 042
     Dates: start: 20131130, end: 20131130
  3. PREDNISOLONE [Suspect]
     Indication: MYASTHENIA GRAVIS
  4. PREDNISOLONE [Suspect]

REACTIONS (6)
  - Drug ineffective [Unknown]
  - Myasthenia gravis [Recovering/Resolving]
  - Helicobacter infection [Unknown]
  - Oral candidiasis [Unknown]
  - Muscular weakness [Recovering/Resolving]
  - Diabetes mellitus [Unknown]
